FAERS Safety Report 10234091 (Version 1)
Quarter: 2014Q1

REPORT INFORMATION
  Report Type: Spontaneous
  Country: US (occurrence: None)
  Receive Date: 20140306
  Receipt Date: 20140306
  Transmission Date: 20141002
  Serious: Yes (Other)
  Sender: FDA-Public Use
  Company Number: 163-21880-13111182

PATIENT
  Age: 56 Year
  Sex: Male

DRUGS (15)
  1. REVLIMID (LENALIDOMIDE) (5 MILLIGRAM, CAPSULES) [Suspect]
     Indication: PLASMA CELL MYELOMA
     Route: 048
     Dates: start: 201106
  2. HUMALOG (INSULIN LISPRO) (UNKNOWN) [Concomitant]
  3. XANAX (ALPRAZOLAM) (TABLETS) [Concomitant]
  4. LASIX (FUROSEMIDE) (TABLETS) [Concomitant]
  5. METHADONE HCL (METHADONE HYDROCHLORIDE) (UNKNOWN) [Concomitant]
  6. NORVASC (AMLODIPINE BESILATE) (TABLETS) [Concomitant]
  7. OXYCODONE CR (OXYCODONE) (UNKNOWN) [Concomitant]
  8. FLOMAX (TAMSULOSIN HYDROCHLORIDE) (UNKNOWN) [Concomitant]
  9. ZOCOR (SIMVASTATIN) (UNKNOWN) [Concomitant]
  10. ZYRTEC (CETIRIZINE HYDROCHLORIDE) (UNKNOWN) [Concomitant]
  11. ALLOPURINOL (UNKNOWN) [Concomitant]
  12. POTASSIUM (UNKNOWN) [Concomitant]
  13. SENNA (UNKNOWN) [Concomitant]
  14. STOOL SOFTENER (DOCUSATE SODIUM) (UNKNOWN) [Concomitant]
  15. ASPIRIN LOW STRENGTH (ACETYLSALICYLIC ACID) (UNKNOWN) [Concomitant]

REACTIONS (1)
  - Renal failure [None]
